FAERS Safety Report 9181715 (Version 1)
Quarter: 2013Q1

REPORT INFORMATION
  Report Type: Spontaneous
  Country: US (occurrence: None)
  Receive Date: 20130321
  Receipt Date: 20130321
  Transmission Date: 20140127
  Serious: Yes (Life-Threatening)
  Sender: FDA-Public Use
  Company Number: None

PATIENT
  Age: 43 Year
  Sex: Male
  Weight: 94.9 kg

DRUGS (1)
  1. QUININE [Suspect]
     Dosage: 1 DOSE 1-2 Q4HOURS PO
     Route: 048
     Dates: start: 20130201, end: 20130219

REACTIONS (3)
  - Abdominal pain [None]
  - Haematuria [None]
  - Thrombotic thrombocytopenic purpura [None]
